FAERS Safety Report 8114913-0 (Version None)
Quarter: 2012Q1

REPORT INFORMATION
  Report Type: 
  Country: None (occurrence: None)
  Receive Date: 20120206
  Receipt Date: 20120125
  Transmission Date: 20120608
  Serious: Yes (Other)
  Sender: FDA-Public Use
  Company Number: US-JNJFOC-20120111896

PATIENT
  Sex: Female
  Weight: 48.08 kg

DRUGS (1)
  1. REMICADE [Suspect]
     Indication: CROHN'S DISEASE
     Route: 042
     Dates: start: 20111001

REACTIONS (9)
  - RASH [None]
  - OEDEMA PERIPHERAL [None]
  - MUSCLE TIGHTNESS [None]
  - ARTHRITIS [None]
  - JOINT SWELLING [None]
  - HYPOKINESIA [None]
  - CHEST DISCOMFORT [None]
  - NAUSEA [None]
  - EATING DISORDER [None]
